FAERS Safety Report 5078966-9 (Version None)
Quarter: 2006Q3

REPORT INFORMATION
  Report Type: 
  Country: None (occurrence: None)
  Receive Date: 20060808
  Receipt Date: 20060724
  Transmission Date: 20061208
  Serious: Yes (Hospitalization)
  Sender: FDA-Public Use
  Company Number: US200607000463

PATIENT
  Age: 89 Year
  Sex: Female

DRUGS (8)
  1. FORTEO [Suspect]
     Indication: OSTEOPOROSIS
     Dosage: 20 UG DAILY
     Dates: start: 20060301
  2. FORTEO [Concomitant]
  3. IMDUR [Concomitant]
  4. PROTONIX [Concomitant]
  5. NTG (GLYCERYL TRINITRATE) [Concomitant]
  6. PERCOCET [Concomitant]
  7. LASIX                      (FUROSEMIDE, FUROSEMIDE SODIUM) [Concomitant]
  8. ATROVENT [Concomitant]

REACTIONS (5)
  - CARDIAC FAILURE CONGESTIVE [None]
  - GASTROINTESTINAL INFECTION [None]
  - INFLUENZA [None]
  - PHARMACEUTICAL PRODUCT COMPLAINT [None]
  - PNEUMONIA [None]
